FAERS Safety Report 11891803 (Version 1)
Quarter: 2016Q1

REPORT INFORMATION
  Report Type: Spontaneous
  Country: US (occurrence: US)
  Receive Date: 20160106
  Receipt Date: 20160106
  Transmission Date: 20160526
  Serious: No
  Sender: FDA-Public Use
  Company Number: US-FRI-1000078689

PATIENT
  Sex: Female

DRUGS (1)
  1. BYSTOLIC [Suspect]
     Active Substance: NEBIVOLOL HYDROCHLORIDE
     Indication: BLOOD PRESSURE MEASUREMENT
     Route: 048
     Dates: start: 201401

REACTIONS (1)
  - Pain [Unknown]
